FAERS Safety Report 9596574 (Version 2)
Quarter: 2013Q4

REPORT INFORMATION
  Report Type: Report from Study
  Country: JP (occurrence: JP)
  Receive Date: 20131004
  Receipt Date: 20131114
  Transmission Date: 20140711
  Serious: Yes (Death, Hospitalization, Other)
  Sender: FDA-Public Use
  Company Number: JP-TAKEDA-TCI2013A05809

PATIENT
  Age: 85 Year
  Sex: Male
  Weight: 53.1 kg

DRUGS (3)
  1. LANSOPRAZOLE [Suspect]
     Indication: PROPHYLAXIS AGAINST GASTROINTESTINAL ULCER
     Dosage: 15 MG, QD
     Route: 048
     Dates: start: 20120823, end: 20121117
  2. LOXOPROFEN [Concomitant]
     Indication: CANCER PAIN
     Dosage: 180 MG, 1DAYS
     Route: 048
     Dates: start: 20120810, end: 20121117
  3. MUCOSTA [Concomitant]
     Dosage: 300 MG, 1DAYS
     Route: 048
     Dates: start: 20120810

REACTIONS (2)
  - Pancreatic carcinoma [Fatal]
  - Condition aggravated [Fatal]
